FAERS Safety Report 5255738-3 (Version None)
Quarter: 2007Q1

REPORT INFORMATION
  Report Type: 
  Country: None (occurrence: None)
  Receive Date: 20070305
  Receipt Date: 20070227
  Transmission Date: 20070707
  Serious: Yes (Hospitalization)
  Sender: FDA-Public Use
  Company Number: FR-MERCK-0702FRA00046

PATIENT
  Age: 54 Year
  Sex: Male

DRUGS (9)
  1. PRIMAXIN [Suspect]
     Route: 042
     Dates: start: 20061209
  2. TRAMADOL HYDROCHLORIDE [Suspect]
     Route: 048
     Dates: start: 20061226
  3. HEPARIN CALCIUM [Suspect]
     Route: 058
     Dates: start: 20061228, end: 20070112
  4. ASPIRIN LYSINE [Suspect]
     Route: 048
     Dates: start: 20061206
  5. OMEPRAZOLE [Suspect]
     Route: 048
     Dates: start: 20061220
  6. CLONAZEPAM [Suspect]
     Route: 048
     Dates: start: 20061212
  7. ZOPICLONE [Suspect]
     Route: 048
     Dates: start: 20061212
  8. NITROGLYCERIN [Suspect]
     Route: 061
     Dates: start: 20061121
  9. CALCIUM CARBONATE [Suspect]
     Route: 048
     Dates: start: 20061206

REACTIONS (3)
  - ECZEMA [None]
  - PRURITUS [None]
  - RASH ERYTHEMATOUS [None]
